FAERS Safety Report 9542331 (Version 2)
Quarter: 2013Q3

REPORT INFORMATION
  Report Type: Report from Study
  Country: US (occurrence: US)
  Receive Date: 20130923
  Receipt Date: 20130923
  Transmission Date: 20140515
  Serious: Yes (Other)
  Sender: FDA-Public Use
  Company Number: US-JNJFOC-20130909313

PATIENT
  Sex: Female
  Weight: 68.04 kg

DRUGS (8)
  1. REMICADE [Suspect]
     Indication: RHEUMATOID ARTHRITIS
     Dosage: 6TH INFUSION
     Route: 042
     Dates: start: 201307, end: 201307
  2. REMICADE [Suspect]
     Indication: RHEUMATOID ARTHRITIS
     Dosage: 4TH INFUSION
     Route: 042
     Dates: start: 2013
  3. REMICADE [Suspect]
     Indication: RHEUMATOID ARTHRITIS
     Dosage: AS TREATMENT FOR EFFECTS OF ARTHRITIS
     Route: 042
     Dates: start: 2012
  4. REMICADE [Suspect]
     Indication: RHEUMATOID ARTHRITIS
     Route: 042
     Dates: start: 2012
  5. METOPROLOL [Concomitant]
     Indication: BLOOD PRESSURE
     Route: 048
  6. LISINOPRIL [Concomitant]
     Indication: BLOOD PRESSURE
     Route: 048
  7. DEXILANT [Concomitant]
     Indication: DYSPEPSIA
     Route: 048
  8. VITAMIN D [Concomitant]
     Indication: SUPPLEMENTATION THERAPY
     Route: 048

REACTIONS (7)
  - Myocardial infarction [Recovered/Resolved]
  - Infusion related reaction [Recovered/Resolved]
  - Arthritis [Recovered/Resolved]
  - Feeling hot [Recovered/Resolved]
  - Nausea [Recovered/Resolved]
  - Blood pressure decreased [Recovered/Resolved]
  - Hyperhidrosis [Recovered/Resolved]
